FAERS Safety Report 6274657-7 (Version None)
Quarter: 2009Q3

REPORT INFORMATION
  Report Type: 
  Country: None (occurrence: None)
  Receive Date: 20090717
  Receipt Date: 20090706
  Transmission Date: 20100115
  Serious: Yes (Hospitalization)
  Sender: FDA-Public Use
  Company Number: 2009-190394-NL

PATIENT
  Age: 28 Year
  Sex: Female
  Weight: 91.2 kg

DRUGS (2)
  1. NUVARING [Suspect]
     Dates: start: 20060310, end: 20080408
  2. ALBUTEROL [Concomitant]

REACTIONS (11)
  - COAGULOPATHY [None]
  - DEHYDRATION [None]
  - DIZZINESS [None]
  - HAEMORRHAGE [None]
  - HEADACHE [None]
  - MUSCULOSKELETAL STIFFNESS [None]
  - NAUSEA [None]
  - TRANSVERSE SINUS THROMBOSIS [None]
  - VARICOSE VEIN [None]
  - VISION BLURRED [None]
  - VOMITING [None]
